FAERS Safety Report 8431442-5 (Version None)
Quarter: 2012Q2

REPORT INFORMATION
  Report Type: 
  Country: None (occurrence: None)
  Receive Date: 20120613
  Receipt Date: 20120604
  Transmission Date: 20120825
  Serious: Yes (Hospitalization)
  Sender: FDA-Public Use
  Company Number: US-BAYER-201024173NA

PATIENT
  Age: 36 Year
  Sex: Female
  Weight: 157 kg

DRUGS (11)
  1. PROMETHAZINE [Concomitant]
     Dosage: 25 MG, UNK
     Dates: start: 20070515
  2. DIOVAN HCT [Concomitant]
     Dosage: 160 / 25 MG
     Route: 048
  3. IRON SUPPLEMENT [Concomitant]
     Dosage: UNK
     Route: 048
     Dates: start: 20070629
  4. DIOVAN [Concomitant]
     Dosage: 160 MG, QD
  5. DIPHENOXYLATE HCL + ATROPINE SULFATE [Concomitant]
     Dosage: UNK
     Dates: start: 20070515
  6. GLUMETZA [Concomitant]
     Dosage: 500 MG, UNK
     Dates: start: 20070219, end: 20070628
  7. MELOXICAM [Concomitant]
     Dosage: 7.5 MG, UNK
     Route: 048
     Dates: start: 20070604
  8. HOME MEDICATION [Concomitant]
     Dosage: 500 MG, QD
  9. MELOXICAM [Concomitant]
     Dosage: 7.5 MG, UNK
     Route: 048
     Dates: start: 20070503
  10. METFORMIN HCL [Concomitant]
     Indication: DIABETES MELLITUS
     Dosage: 1000 MG, QD
  11. YASMIN [Suspect]
     Dosage: UNK
     Route: 048
     Dates: start: 20070501, end: 20070601

REACTIONS (3)
  - ANXIETY [None]
  - DEEP VEIN THROMBOSIS [None]
  - DEPRESSION [None]
